FAERS Safety Report 9167642 (Version 1)
Quarter: 2013Q1

REPORT INFORMATION
  Report Type: Spontaneous
  Country: PL (occurrence: None)
  Receive Date: 20130305
  Receipt Date: 20130305
  Transmission Date: 20140127
  Serious: Yes (Hospitalization)
  Sender: FDA-Public Use
  Company Number: IBUP20130002

PATIENT
  Age: 53 Year
  Sex: Male

DRUGS (1)
  1. IBUPROFEN [Suspect]
     Indication: PRODUCT USED FOR UNKNOWN INDICATION
     Route: 048

REACTIONS (12)
  - Benign familial pemphigus [None]
  - Hepatic function abnormal [None]
  - Alanine aminotransferase increased [None]
  - Aspartate aminotransferase increased [None]
  - Blood alkaline phosphatase increased [None]
  - Blood cholesterol increased [None]
  - Blood triglycerides increased [None]
  - Blood bilirubin increased [None]
  - Hypertension [None]
  - Staphylococcal skin infection [None]
  - Pain of skin [None]
  - Skin graft [None]
